FAERS Safety Report 6175246-5 (Version None)
Quarter: 2009Q2

REPORT INFORMATION
  Report Type: 
  Country: None (occurrence: None)
  Receive Date: 20090430
  Receipt Date: 20090130
  Transmission Date: 20091009
  Serious: No
  Sender: FDA-Public Use
  Company Number: US-ASTRAZENECA-2009UW02924

PATIENT
  Sex: Female

DRUGS (4)
  1. NEXIUM [Suspect]
     Route: 048
  2. CARDIZEM CD [Concomitant]
  3. ZETIA [Concomitant]
  4. K+ [Concomitant]

REACTIONS (1)
  - ANXIETY [None]
